FAERS Safety Report 23505101 (Version 2)
Quarter: 2024Q1

REPORT INFORMATION
  Report Type: Report from Study
  Country: BE (occurrence: BE)
  Receive Date: 20240209
  Receipt Date: 20240229
  Transmission Date: 20240410
  Serious: Yes (Hospitalization)
  Sender: FDA-Public Use
  Company Number: BE-BEH-2024168425

PATIENT
  Sex: Female
  Weight: 40 kg

DRUGS (1)
  1. HIZENTRA [Suspect]
     Active Substance: HUMAN IMMUNOGLOBULIN G
     Indication: Cell-mediated immune deficiency
     Dosage: 1.00 X QW
     Route: 058
     Dates: start: 20160521

REACTIONS (1)
  - Hypercapnia [Fatal]
